FAERS Safety Report 4914091-2 (Version None)
Quarter: 2006Q1

REPORT INFORMATION
  Report Type: 
  Country: None (occurrence: None)
  Receive Date: 20060213
  Receipt Date: 20060203
  Transmission Date: 20060701
  Serious: Yes (Other)
  Sender: FDA-Public Use
  Company Number: 200610484GDS

PATIENT
  Age: 16 Year
  Sex: Female

DRUGS (3)
  1. CIPRO [Suspect]
     Dosage: 1 G, TOTAL DAILY, ORAL
     Route: 048
  2. MOTRIN [Suspect]
     Dosage: 400 MG, QID, ORAL
     Route: 048
  3. CONTRACEPTIVE DRUG NOS [Concomitant]

REACTIONS (2)
  - RENAL FAILURE ACUTE [None]
  - RENAL TUBULAR NECROSIS [None]
